FAERS Safety Report 6095421-8 (Version None)
Quarter: 2009Q1

REPORT INFORMATION
  Report Type: 
  Country: None (occurrence: None)
  Receive Date: 20090227
  Receipt Date: 20080328
  Transmission Date: 20090719
  Serious: No
  Sender: FDA-Public Use
  Company Number: A0718085A

PATIENT
  Age: 17 Year
  Sex: Female

DRUGS (2)
  1. LAMICTAL [Suspect]
     Dosage: 200MG PER DAY
     Route: 048
     Dates: start: 20070101
  2. TRI-SPRINTEC [Suspect]
     Route: 048
     Dates: start: 20070601

REACTIONS (7)
  - ABDOMINAL DISTENSION [None]
  - ACNE [None]
  - IRRITABILITY [None]
  - MENORRHAGIA [None]
  - MENSTRUATION IRREGULAR [None]
  - METRORRHAGIA [None]
  - NAUSEA [None]
